FAERS Safety Report 23878596 (Version 1)
Quarter: 2024Q2

REPORT INFORMATION
  Report Type: Spontaneous
  Country: FR (occurrence: FR)
  Receive Date: 20240521
  Receipt Date: 20240521
  Transmission Date: 20240716
  Serious: Yes (Other)
  Sender: FDA-Public Use
  Company Number: FR-Orion Corporation ORION PHARMA-TREX2024-0110

PATIENT
  Age: 46 Year
  Sex: Male
  Weight: 106 kg

DRUGS (3)
  1. METHOTREXATE [Suspect]
     Active Substance: METHOTREXATE
     Indication: Rheumatoid arthritis
     Dosage: 15 MG (1 TABLET AND A HALF), QWK
     Dates: start: 20240301, end: 20240419
  2. METHOTREXATE [Suspect]
     Active Substance: METHOTREXATE
     Dosage: 20MG (2 TABLETS), QWK
     Dates: start: 20240426
  3. FOLIC ACID [Concomitant]
     Active Substance: FOLIC ACID
     Dosage: 3 TABLETS WEEKLY
     Dates: start: 2014

REACTIONS (4)
  - Product substitution issue [Unknown]
  - Product complaint [Unknown]
  - Rheumatoid arthritis [Unknown]
  - Drug ineffective [Unknown]
